FAERS Safety Report 26156135 (Version 1)
Quarter: 2025Q4

REPORT INFORMATION
  Report Type: Spontaneous
  Country: US (occurrence: US)
  Receive Date: 20251215
  Receipt Date: 20251215
  Transmission Date: 20260117
  Serious: Yes (Hospitalization)
  Sender: Atnahs Healthcare
  Company Number: US-ATNAHS-2025-PMNV-US002014

PATIENT

DRUGS (2)
  1. NAPROSYN [Suspect]
     Active Substance: NAPROXEN
     Indication: Analgesic intervention supportive therapy
     Dosage: UNK, BID
     Route: 065
  2. INDOMETHACIN [Suspect]
     Active Substance: INDOMETHACIN
     Indication: Analgesic intervention supportive therapy
     Dosage: UNK, BID
     Route: 065

REACTIONS (4)
  - Glomerulonephritis membranous [Unknown]
  - Renal vein thrombosis [Recovering/Resolving]
  - Venous thrombosis [Recovering/Resolving]
  - Spermatic vein thrombosis [Unknown]
